FAERS Safety Report 7062419-2 (Version None)
Quarter: 2010Q4

REPORT INFORMATION
  Report Type: 
  Country: None (occurrence: None)
  Receive Date: 20101026
  Receipt Date: 20091021
  Transmission Date: 20110411
  Serious: No
  Sender: FDA-Public Use
  Company Number: US-PFIZER INC-2009260289

PATIENT
  Sex: Male

DRUGS (5)
  1. LIPITOR [Suspect]
     Indication: HYPERLIPIDAEMIA
     Dosage: UNK
     Route: 048
     Dates: start: 20011101
  2. ACETYLSALICYLIC ACID [Concomitant]
  3. NITROGLYCERIN [Concomitant]
     Dosage: UNK
     Route: 060
  4. LOVAZA [Concomitant]
     Dosage: UNK
  5. FLONASE [Concomitant]
     Dosage: UNK

REACTIONS (1)
  - MYALGIA [None]
